FAERS Safety Report 5140779-7 (Version None)
Quarter: 2006Q4

REPORT INFORMATION
  Report Type: 
  Country: None (occurrence: None)
  Receive Date: 20061020
  Receipt Date: 20061012
  Transmission Date: 20070319
  Serious: Yes (Other)
  Sender: FDA-Public Use
  Company Number: 2006BH013991

PATIENT
  Sex: Female

DRUGS (6)
  1. ALBUMIN (HUMAN) [Suspect]
     Indication: DRUG USE FOR UNKNOWN INDICATION
  2. ALBUTEIN [Suspect]
     Indication: GUILLAIN-BARRE SYNDROME
     Dosage: SEE IMAGE
     Dates: start: 20050319, end: 20050319
  3. ALBUTEIN [Suspect]
     Indication: GUILLAIN-BARRE SYNDROME
     Dosage: SEE IMAGE
     Dates: start: 20050321, end: 20050321
  4. ALBUTEIN [Suspect]
     Indication: GUILLAIN-BARRE SYNDROME
     Dosage: SEE IMAGE
     Dates: start: 20050323, end: 20050323
  5. ALBUMIN (HUMAN) [Suspect]
     Indication: DRUG USE FOR UNKNOWN INDICATION
  6. ALBUMIN (HUMAN) [Suspect]
     Indication: DRUG USE FOR UNKNOWN INDICATION

REACTIONS (2)
  - CHEST DISCOMFORT [None]
  - HEPATITIS C [None]
